FAERS Safety Report 9229572 (Version 2)
Quarter: 2013Q2

REPORT INFORMATION
  Report Type: Spontaneous
  Country: AU (occurrence: AU)
  Receive Date: 20130414
  Receipt Date: 20130510
  Transmission Date: 20140414
  Serious: Yes (Death, Hospitalization)
  Sender: FDA-Public Use
  Company Number: AU-B.I. PHARMACEUTICALS,INC./RIDGEFIELD-2013-AU-00425AU

PATIENT
  Age: 83 Year
  Sex: Male

DRUGS (15)
  1. PRADAXA [Suspect]
     Indication: CEREBROVASCULAR ACCIDENT PROPHYLAXIS
     Dosage: 220 MG
     Dates: start: 20110926
  2. PRADAXA [Suspect]
     Indication: ATRIAL FIBRILLATION
  3. COVERSYL [Concomitant]
     Dosage: 5 MG
     Dates: start: 20070506
  4. DIABEX XR [Concomitant]
     Dosage: 500 MG
     Dates: start: 20091224
  5. ISOPTIN SR [Concomitant]
     Dosage: 180 MG
     Dates: start: 20100414
  6. LANOXIN-PG [Concomitant]
     Dosage: 125 MCG
     Dates: start: 20100616
  7. LIPITOR [Concomitant]
     Dosage: 10 MG
     Dates: start: 20060512
  8. NEXIUM [Concomitant]
     Dosage: 40 MG
     Dates: start: 20111023
  9. PANADOL OSTEO [Concomitant]
  10. VENTOLIN INHALER [Concomitant]
     Dosage: 100 MCG/DOSE
     Route: 055
     Dates: start: 20060327
  11. DUODART [Concomitant]
     Dates: start: 20110309
  12. VALPAM [Concomitant]
     Indication: POSTOPERATIVE ANALGESIA
  13. OXYCONTIN [Concomitant]
     Indication: POSTOPERATIVE ANALGESIA
  14. NOROXIN [Concomitant]
     Indication: URINARY TRACT INFECTION
  15. SERETIDE ACCUHALER [Concomitant]
     Dosage: 250/50
     Dates: start: 20120531

REACTIONS (9)
  - Haemorrhage intracranial [Fatal]
  - Diarrhoea [Recovered/Resolved]
  - Dyspnoea [Recovered/Resolved]
  - Unresponsive to stimuli [Unknown]
  - Hemiparesis [Unknown]
  - Aphasia [Unknown]
  - Blood pressure increased [Unknown]
  - Lethargy [Recovered/Resolved]
  - Restlessness [Unknown]
